FAERS Safety Report 7110744-9 (Version None)
Quarter: 2010Q4

REPORT INFORMATION
  Report Type: 
  Country: None (occurrence: None)
  Receive Date: 20101118
  Receipt Date: 20101109
  Transmission Date: 20110411
  Serious: Yes (Hospitalization)
  Sender: FDA-Public Use
  Company Number: B0661924A

PATIENT
  Sex: Female

DRUGS (2)
  1. LAMICTAL [Suspect]
     Route: 065
     Dates: start: 20100401
  2. TRILEPTAL [Concomitant]
     Dosage: 6MG PER DAY

REACTIONS (2)
  - PNEUMONIA [None]
  - PYREXIA [None]
